FAERS Safety Report 25863140 (Version 1)
Quarter: 2025Q3

REPORT INFORMATION
  Report Type: Spontaneous
  Country: EU (occurrence: EU)
  Receive Date: 20250930
  Receipt Date: 20250930
  Transmission Date: 20251021
  Serious: Yes (Disabling)
  Sender: TEVA
  Company Number: None

PATIENT
  Age: 27 Year
  Sex: Female
  Weight: 125 kg

DRUGS (2)
  1. MOXIFLOXACIN [Suspect]
     Active Substance: MOXIFLOXACIN
     Indication: Pyelonephritis
     Route: 048
     Dates: start: 20151006, end: 20151016
  2. CIPROFLOXACIN [Suspect]
     Active Substance: CIPROFLOXACIN
     Indication: Pyelonephritis
     Route: 048
     Dates: start: 20151016, end: 20151102

REACTIONS (7)
  - Joint stiffness [Recovered/Resolved with Sequelae]
  - Pain [Not Recovered/Not Resolved]
  - Tendon rupture [Recovered/Resolved with Sequelae]
  - Joint range of motion decreased [Recovered/Resolved with Sequelae]
  - Palpitations [Recovered/Resolved]
  - Heart rate increased [Recovered/Resolved]
  - Ligament rupture [Recovered/Resolved with Sequelae]

NARRATIVE: CASE EVENT DATE: 20151016
